FAERS Safety Report 21664522 (Version 1)
Quarter: 2022Q4

REPORT INFORMATION
  Report Type: Spontaneous
  Country: GB (occurrence: GB)
  Receive Date: 20221130
  Receipt Date: 20221130
  Transmission Date: 20230113
  Serious: Yes (Life-Threatening, Hospitalization, Other)
  Sender: FDA-Public Use
  Company Number: GB-MHRA-MED-202203031413418450-ZCS7C

PATIENT
  Sex: Female
  Weight: 50 kg

DRUGS (5)
  1. INVOKANA [Suspect]
     Active Substance: CANAGLIFLOZIN
     Indication: Type 2 diabetes mellitus
     Route: 048
     Dates: start: 20220228, end: 20220302
  2. BEZAFIBRATE [Concomitant]
     Active Substance: BEZAFIBRATE
  3. LEVOTHYROXINE [Concomitant]
     Active Substance: LEVOTHYROXINE
  4. MIRTAZAPINE [Concomitant]
     Active Substance: MIRTAZAPINE
  5. PROPRANOLOL [Concomitant]
     Active Substance: PROPRANOLOL HYDROCHLORIDE

REACTIONS (1)
  - Diabetic ketoacidosis [Recovering/Resolving]

NARRATIVE: CASE EVENT DATE: 20220228
